FAERS Safety Report 16468531 (Version 1)
Quarter: 2019Q2

REPORT INFORMATION
  Report Type: Spontaneous
  Country: AT (occurrence: AT)
  Receive Date: 20190624
  Receipt Date: 20190624
  Transmission Date: 20190711
  Serious: No
  Sender: FDA-Public Use
  Company Number: AT-BEH-2019103284

PATIENT
  Age: 50 Year
  Sex: Male
  Weight: 75 kg

DRUGS (11)
  1. HIZENTRA [Suspect]
     Active Substance: HUMAN IMMUNOGLOBULIN G
     Dosage: 10 MILLILITER, TOT
     Route: 058
     Dates: start: 20190423, end: 20190423
  2. HIZENTRA [Suspect]
     Active Substance: HUMAN IMMUNOGLOBULIN G
     Dosage: 10 MILLILITER, TOT
     Route: 058
     Dates: start: 20190526, end: 20190526
  3. HIZENTRA [Suspect]
     Active Substance: HUMAN IMMUNOGLOBULIN G
     Dosage: 10 MILLILITER, TOT
     Route: 058
     Dates: start: 20190425, end: 20190425
  4. HIRUDOID [Concomitant]
     Active Substance: GLYCOSAMINOGLYCANS
     Route: 065
  5. HIZENTRA [Suspect]
     Active Substance: HUMAN IMMUNOGLOBULIN G
     Dosage: 10 MILLILITER, TOT
     Route: 058
     Dates: start: 20190524, end: 20190524
  6. HIZENTRA [Suspect]
     Active Substance: HUMAN IMMUNOGLOBULIN G
     Dosage: 10 MILLILITER, QOD
     Route: 058
     Dates: start: 20190412, end: 20190526
  7. HIZENTRA [Suspect]
     Active Substance: HUMAN IMMUNOGLOBULIN G
     Dosage: 10 MILLILITER, TOT
     Route: 058
     Dates: start: 20190520, end: 20190520
  8. HIZENTRA [Suspect]
     Active Substance: HUMAN IMMUNOGLOBULIN G
     Indication: HYPOGAMMAGLOBULINAEMIA
     Dosage: 20 MILLILITER WITH A BODY WEIGHT OF 75 KG, BIW (EVERY 4 DAYS)
     Route: 058
     Dates: start: 20190412
  9. HIZENTRA [Suspect]
     Active Substance: HUMAN IMMUNOGLOBULIN G
     Indication: HYPERGAMMAGLOBULINAEMIA BENIGN MONOCLONAL
     Dosage: 10 MILLILITER, TOT
     Route: 058
     Dates: start: 20190412, end: 20190412
  10. HIZENTRA [Suspect]
     Active Substance: HUMAN IMMUNOGLOBULIN G
     Dosage: 10 MILLILITER, TOT
     Route: 058
     Dates: start: 20190522, end: 20190522
  11. ASPIRIN (E.C.) [Concomitant]
     Active Substance: ASPIRIN
     Dosage: 250 MILLIGRAM, QD
     Route: 065
     Dates: start: 20190524

REACTIONS (7)
  - Thrombophlebitis [Not Recovered/Not Resolved]
  - Coagulation factor VIII level decreased [Unknown]
  - No adverse event [Unknown]
  - Burning sensation [Unknown]
  - Nodule [Unknown]
  - Pruritus [Unknown]
  - Product dose omission [Unknown]

NARRATIVE: CASE EVENT DATE: 20190426
